FAERS Safety Report 25990383 (Version 1)
Quarter: 2025Q4

REPORT INFORMATION
  Report Type: Spontaneous
  Country: EU (occurrence: EU)
  Receive Date: 20251103
  Receipt Date: 20251103
  Transmission Date: 20260118
  Serious: Yes (Hospitalization, Other)
  Sender: NOVARTIS
  Company Number: EU-ASPEN-GLO2025IT008479

PATIENT
  Age: 60 Year
  Sex: Male

DRUGS (12)
  1. SACUBITRIL\VALSARTAN [Suspect]
     Active Substance: SACUBITRIL\VALSARTAN
     Indication: Cardiac failure
     Dosage: 2 DOSAGE FORM, QD (1 DOSAGE FORM, 2 DOSE DAILY, 49/51 MG)
     Route: 065
  2. SACUBITRIL\VALSARTAN [Suspect]
     Active Substance: SACUBITRIL\VALSARTAN
     Indication: Condition aggravated
     Dosage: 1 DOSAGE FORM (OPTIMIZED GUIDED MEDICAL THERAPY (OGMT) )
     Route: 065
  3. DIGOXIN [Suspect]
     Active Substance: DIGOXIN
     Indication: Cardiac failure
     Dosage: 0.13 MG, QD (0.125 MILLIGRAM, QD)
     Route: 065
  4. DIGOXIN [Suspect]
     Active Substance: DIGOXIN
     Indication: Condition aggravated
     Dosage: OPTIMIZED GUIDED MEDICAL THERAPY (OGMT)
     Route: 065
  5. METOPROLOL [Suspect]
     Active Substance: METOPROLOL
     Indication: Cardiac failure
     Dosage: 200 MG, QD (100 MILLIGRAM, 2 DOSE DAILY)
     Route: 065
  6. METOPROLOL [Suspect]
     Active Substance: METOPROLOL
     Indication: Condition aggravated
     Dosage: 100 MG, 2 DAYS OPTIMIZED GUIDED MEDICAL THERAPY (OGMT)
     Route: 065
  7. RIVAROXABAN [Suspect]
     Active Substance: RIVAROXABAN
     Indication: Cardiac failure
     Dosage: 20 MG, QD, OPTIMIZED GUIDED MEDICAL THERAPY (OGMT)
     Route: 065
  8. RIVAROXABAN [Suspect]
     Active Substance: RIVAROXABAN
     Indication: Condition aggravated
  9. FUROSEMIDE [Suspect]
     Active Substance: FUROSEMIDE
     Indication: Cardiac failure
     Dosage: 0.5 MG, QD (0.250 MILLIGRAM, 2 DOSE DAILY)
     Route: 065
  10. FUROSEMIDE [Suspect]
     Active Substance: FUROSEMIDE
     Indication: Condition aggravated
     Dosage: 0.25 MG, 2 DAY, OPTIMIZED GUIDED MEDICAL THERAPY (OGMT)
     Route: 065
  11. CANRENONE [Suspect]
     Active Substance: CANRENONE
     Indication: Cardiac failure
     Dosage: 100 MG (? CP DAILY)
     Route: 065
  12. CANRENONE [Suspect]
     Active Substance: CANRENONE
     Indication: Condition aggravated
     Dosage: 0.5 DOSAGE FORM, QD, OPTIMIZED GUIDED MEDICAL THERAPY (OGMT)
     Route: 065

REACTIONS (4)
  - Therapy non-responder [Unknown]
  - Dyspnoea [Recovered/Resolved]
  - Acute pulmonary oedema [Recovered/Resolved]
  - Atrial fibrillation [Recovered/Resolved]

NARRATIVE: CASE EVENT DATE: 20220601
